FAERS Safety Report 25600682 (Version 1)
Quarter: 2025Q3

REPORT INFORMATION
  Report Type: Spontaneous
  Country: US (occurrence: None)
  Receive Date: 20250724
  Receipt Date: 20250724
  Transmission Date: 20251020
  Serious: Yes (Other)
  Sender: FDA-CTU
  Company Number: None

PATIENT
  Sex: Female

DRUGS (15)
  1. TACROLIMUS [Suspect]
     Active Substance: TACROLIMUS
     Indication: Renal transplant
     Dosage: TAKE 2 CAPSULES (1 MG) BY MOUTH EVERY TWELVE HOURS?
     Route: 048
     Dates: start: 20180713
  2. ASPIRIN [Concomitant]
     Active Substance: ASPIRIN
  3. FUROSEMIDE [Concomitant]
     Active Substance: FUROSEMIDE
  4. HUMALOG PEN [Concomitant]
     Active Substance: INSULIN LISPRO
  5. KP VITAMIN D [Concomitant]
  6. LISINOPRIL [Concomitant]
     Active Substance: LISINOPRIL
  7. METOPROLOL TARTRATE [Concomitant]
     Active Substance: METOPROLOL TARTRATE
  8. MULTI-VITAMN [Concomitant]
  9. MYCOPHENOLATE MOFETIL [Concomitant]
     Active Substance: MYCOPHENOLATE MOFETIL
  10. PREDNISONE [Concomitant]
     Active Substance: PREDNISONE
  11. SULFAMETHOXAZOLE\TRIMETHOPRIM [Concomitant]
     Active Substance: SULFAMETHOXAZOLE\TRIMETHOPRIM
  12. TRESIBA [Concomitant]
     Active Substance: INSULIN DEGLUDEC
  13. VITAMIN D [Concomitant]
     Active Substance: VITAMIN D NOS
  14. ZOCOR [Concomitant]
     Active Substance: SIMVASTATIN
  15. MYCOPHENOLIC ACID [Concomitant]
     Active Substance: MYCOPHENOLIC ACID

REACTIONS (3)
  - Fatigue [None]
  - Blood glucose increased [None]
  - Neoplasm malignant [None]
